FAERS Safety Report 4383449-5 (Version None)
Quarter: 2004Q2

REPORT INFORMATION
  Report Type: 
  Country: None (occurrence: None)
  Receive Date: 20040623
  Receipt Date: 20040623
  Transmission Date: 20050107
  Serious: Yes (Hospitalization)
  Sender: FDA-Public Use
  Company Number: None

PATIENT
  Age: 68 Year
  Sex: Male
  Weight: 70.4 kg

DRUGS (8)
  1. EPTIFIBATIDE (INLEGRILIN) [Suspect]
     Indication: ANTIPLATELET THERAPY
     Dosage: 2(6.2 ML BOLUS), 22 ML /HR IV
     Route: 042
     Dates: start: 20040616, end: 20040617
  2. MIDAZOLAM HCL [Concomitant]
  3. FENTANYL [Concomitant]
  4. NITROGLYCERIN [Concomitant]
  5. CEFAZOLIN [Concomitant]
  6. CLOPIDOGREL BISULFATE [Concomitant]
  7. ASPIRIN [Concomitant]
  8. PEPCID [Concomitant]

REACTIONS (1)
  - WOUND SECRETION [None]
